FAERS Safety Report 12700421 (Version 1)
Quarter: 2016Q3

REPORT INFORMATION
  Report Type: Spontaneous
  Country: US (occurrence: US)
  Receive Date: 20160830
  Receipt Date: 20160830
  Transmission Date: 20161109
  Serious: No
  Sender: FDA-Public Use
  Company Number: US-SA-2016SA001705

PATIENT
  Age: 7 Year
  Sex: Male
  Weight: 17.23 kg

DRUGS (13)
  1. FABRAZYME [Suspect]
     Active Substance: AGALSIDASE BETA
     Indication: LIPIDOSIS
     Dosage: DOSE:93 UNIT(S)/KILOGRAM BODYWEIGHT
     Route: 041
     Dates: start: 20131120
  2. ALBUTEROL SULFATE. [Concomitant]
     Active Substance: ALBUTEROL SULFATE
     Dosage: AS DIRECTED
     Dates: start: 20150610
  3. SINGULAIR [Concomitant]
     Active Substance: MONTELUKAST SODIUM
     Dosage: 4 MG TABLET, AS DIRECTED
     Dates: start: 20131107
  4. HEPARIN [Concomitant]
     Active Substance: HEPARIN SODIUM
     Dosage: 100 UNITS/ML, AS DIRECTED
     Dates: start: 20150928
  5. NORMAL SALINE [Concomitant]
     Active Substance: SODIUM CHLORIDE
     Dosage: AS DIRECTED
     Dates: start: 20150928
  6. DIPHENHYDRAMINE. [Concomitant]
     Active Substance: DIPHENHYDRAMINE
     Indication: ANAPHYLACTIC REACTION
     Dosage: AS DIRECTED
     Dates: start: 20150928
  7. SODIUM CHLORIDE. [Concomitant]
     Active Substance: SODIUM CHLORIDE
     Indication: FLUSHING
     Dosage: AS DIRECTED
     Dates: start: 20150928
  8. SPIRONOLACTONE. [Concomitant]
     Active Substance: SPIRONOLACTONE
     Dosage: AS DIRECTED
     Dates: start: 20150831
  9. L-M-X [Concomitant]
     Dosage: AS DIRECTED
     Dates: start: 20150928
  10. FABRAZYME [Suspect]
     Active Substance: AGALSIDASE BETA
     Indication: FABRY^S DISEASE
     Dosage: DOSE:93 UNIT(S)/KILOGRAM BODYWEIGHT
     Route: 041
     Dates: start: 20131120
  11. QVAR [Concomitant]
     Active Substance: BECLOMETHASONE DIPROPIONATE
     Dosage: 80 MCG, INHALER AS DIRECTED
     Dates: start: 20131122
  12. EPIPEN [Concomitant]
     Active Substance: EPINEPHRINE
     Indication: ANAPHYLACTIC REACTION
     Dosage: AS DIRECTED
     Dates: start: 20150928
  13. LANSOPRAZOLE. [Concomitant]
     Active Substance: LANSOPRAZOLE
     Dosage: 15 MG CAPSULE, AS DIRECTED
     Dates: start: 20150831

REACTIONS (1)
  - Abdominal pain upper [Recovered/Resolved]
